FAERS Safety Report 12182871 (Version 1)
Quarter: 2016Q1

REPORT INFORMATION
  Report Type: Spontaneous
  Country: NL (occurrence: NL)
  Receive Date: 20160316
  Receipt Date: 20160316
  Transmission Date: 20160526
  Serious: Yes (Other)
  Sender: FDA-Public Use
  Company Number: NL-ASTRAZENECA-2016SE26272

PATIENT
  Age: 65 Year
  Sex: Male

DRUGS (3)
  1. DORZOLAMIDE HYDROCHLORIDE, TIMOLOL MALEAAT [Concomitant]
     Route: 047
     Dates: start: 2014
  2. ZOLADEX [Suspect]
     Active Substance: GOSERELIN ACETATE
     Indication: PROSTATE CANCER
     Route: 058
     Dates: start: 201602
  3. TRAVOPROST [Concomitant]
     Active Substance: TRAVOPROST
     Dosage: 40MCG/ML FLACON 2,5ML
     Route: 047
     Dates: start: 2014

REACTIONS (1)
  - Intraocular pressure increased [Not Recovered/Not Resolved]

NARRATIVE: CASE EVENT DATE: 20160204
